FAERS Safety Report 6136530-4 (Version None)
Quarter: 2009Q1

REPORT INFORMATION
  Report Type: 
  Country: None (occurrence: None)
  Receive Date: 20090330
  Receipt Date: 20090318
  Transmission Date: 20090719
  Serious: Yes (Hospitalization, Other)
  Sender: FDA-Public Use
  Company Number: US-PFIZER INC-2009185598

PATIENT
  Sex: Female
  Weight: 69.853 kg

DRUGS (5)
  1. QUINAPRIL HCL [Suspect]
     Indication: HYPERTENSION
  2. AMLODIPINE BESILATE [Suspect]
     Indication: HYPERTENSION
     Dosage: 5 MG, 1X/DAY
     Dates: start: 20090201
  3. SYNTHROID [Concomitant]
     Dosage: UNK
  4. WELCHOL [Concomitant]
  5. GEMFIBROZIL [Concomitant]

REACTIONS (5)
  - BLOOD ELECTROLYTES DECREASED [None]
  - BRONCHITIS [None]
  - COUGH [None]
  - LARYNGITIS [None]
  - SINUS ARREST [None]
